FAERS Safety Report 10023832 (Version 1)
Quarter: 2014Q1

REPORT INFORMATION
  Report Type: Spontaneous
  Country: US (occurrence: None)
  Receive Date: 20140304
  Receipt Date: 20140304
  Transmission Date: 20141002
  Serious: Yes (Other)
  Sender: FDA-Public Use
  Company Number: RB-52173-2013

PATIENT
  Age: 49 Year
  Sex: Male

DRUGS (2)
  1. SUBOXONE 8 MG [Suspect]
     Indication: DRUG DEPENDENCE
     Dosage: DAILY DOSE UNKNOWN
     Dates: start: 2011, end: 2011
  2. DILANTIN [Concomitant]

REACTIONS (1)
  - Drug hypersensitivity [None]
